FAERS Safety Report 15193375 (Version 1)
Quarter: 2018Q3

REPORT INFORMATION
  Report Type: Spontaneous
  Country: IT (occurrence: IT)
  Receive Date: 20180725
  Receipt Date: 20180725
  Transmission Date: 20181010
  Serious: Yes (Other)
  Sender: FDA-Public Use
  Company Number: IT-AXELLIA-001794

PATIENT
  Age: 82 Year
  Sex: Female
  Weight: 75 kg

DRUGS (1)
  1. VANCOMYCIN [Suspect]
     Active Substance: VANCOMYCIN
     Indication: PANCREATITIS
     Route: 041
     Dates: start: 20180525, end: 20180525

REACTIONS (2)
  - Laryngeal oedema [Recovered/Resolved]
  - Rash generalised [Recovered/Resolved]

NARRATIVE: CASE EVENT DATE: 20180525
